FAERS Safety Report 5609114-1 (Version None)
Quarter: 2008Q1

REPORT INFORMATION
  Report Type: 
  Country: None (occurrence: None)
  Receive Date: 20080129
  Receipt Date: 20080129
  Transmission Date: 20080703
  Serious: Yes (Other)
  Sender: FDA-Public Use
  Company Number: None

PATIENT
  Age: 67 Year
  Sex: Female
  Weight: 73.4827 kg

DRUGS (1)
  1. ULTRACET [Suspect]
     Indication: FIBROMYALGIA
     Dosage: 37.5/ 325 MG QD

REACTIONS (2)
  - HYPERSENSITIVITY [None]
  - RASH [None]
